FAERS Safety Report 8339203 (Version 2)
Quarter: 2013Q1

REPORT INFORMATION
  Report Type: Spontaneous
  Country: US (occurrence: US)
  Receive Date: 20120117
  Receipt Date: 20130226
  Transmission Date: 20140127
  Serious: Yes (Other)
  Sender: FDA-Public Use
  Company Number: US-ROCHE-1029912

PATIENT
  Sex: Female
  Weight: 44.49 kg

DRUGS (3)
  1. ACCUTANE [Suspect]
     Indication: ACNE
     Route: 065
     Dates: start: 199601, end: 199603
  2. ACCUTANE [Suspect]
     Route: 065
     Dates: start: 1997, end: 1999
  3. TETRACYCLINE [Concomitant]

REACTIONS (6)
  - Inflammatory bowel disease [Unknown]
  - Colitis ulcerative [Unknown]
  - Crohn^s disease [Unknown]
  - Depression [Unknown]
  - Injury [Unknown]
  - Irritable bowel syndrome [Unknown]
